FAERS Safety Report 23175104 (Version 3)
Quarter: 2024Q1

REPORT INFORMATION
  Report Type: Report from Study
  Country: US (occurrence: US)
  Receive Date: 20231112
  Receipt Date: 20240319
  Transmission Date: 20240410
  Serious: Yes (Other)
  Sender: FDA-Public Use
  Company Number: US-ABBVIE-5490633

PATIENT
  Sex: Female

DRUGS (1)
  1. VENCLEXTA [Suspect]
     Active Substance: VENETOCLAX
     Indication: Chronic lymphocytic leukaemia
     Dosage: WITH A MEAL AND 8OZ WATER?FORM STRENGTH 100 MILLIGRAMS
     Route: 048

REACTIONS (3)
  - Atrioventricular block [Unknown]
  - Atrial fibrillation [Unknown]
  - Hip fracture [Unknown]
